FAERS Safety Report 22177327 (Version 1)
Quarter: 2023Q2

REPORT INFORMATION
  Report Type: Spontaneous
  Country: US (occurrence: None)
  Receive Date: 20230405
  Receipt Date: 20230405
  Transmission Date: 20230722
  Serious: Yes (unspecified)
  Sender: FDA-Public Use
  Company Number: None

PATIENT
  Age: 90 Year
  Sex: Male
  Weight: 77.1 kg

DRUGS (1)
  1. DEFINITY [Suspect]
     Active Substance: PERFLUTREN
     Indication: Ultrasound scan
     Dosage: OTHER FREQUENCY : ONCE DURING ULTRAS;?
     Route: 040
     Dates: start: 20230328

REACTIONS (8)
  - Hypotension [None]
  - Nausea [None]
  - Vomiting [None]
  - Paraesthesia oral [None]
  - Erythema [None]
  - Lacrimation increased [None]
  - Syncope [None]
  - Cardiac failure congestive [None]

NARRATIVE: CASE EVENT DATE: 20230328
